FAERS Safety Report 6019958-2 (Version None)
Quarter: 2008Q4

REPORT INFORMATION
  Report Type: 
  Country: None (occurrence: None)
  Receive Date: 20081223
  Receipt Date: 20081209
  Transmission Date: 20090506
  Serious: Yes (Death, Hospitalization)
  Sender: FDA-Public Use
  Company Number: 55000

PATIENT
  Age: 61 Year
  Sex: Male

DRUGS (1)
  1. CYCLOSPORINE [Suspect]
     Indication: IMMUNOSUPPRESSION

REACTIONS (6)
  - ASPERGILLOSIS [None]
  - CARDIOGENIC SHOCK [None]
  - EPSTEIN-BARR VIRUS ASSOCIATED LYMPHOPROLIFERATIVE DISORDER [None]
  - HAEMODYNAMIC INSTABILITY [None]
  - RENAL FAILURE ACUTE [None]
  - VASCULITIS [None]
